FAERS Safety Report 12571656 (Version 1)
Quarter: 2016Q3

REPORT INFORMATION
  Report Type: Spontaneous
  Country: DK (occurrence: DK)
  Receive Date: 20160719
  Receipt Date: 20160719
  Transmission Date: 20161109
  Serious: Yes (Other)
  Sender: FDA-Public Use
  Company Number: DK-ACTAVIS-2016-15864

PATIENT
  Sex: Female

DRUGS (8)
  1. HYDROCORTISONE (UNKNOWN) [Suspect]
     Active Substance: HYDROCORTISONE
     Indication: DERMATITIS ATOPIC
     Dosage: HYDROCORTISONE ACETATE 1% CREAM
     Route: 061
  2. HYDROCORTISONE (UNKNOWN) [Suspect]
     Active Substance: HYDROCORTISONE
     Dosage: HYDROCORTISONE BUTYRATE 0.1% CREAM
     Route: 061
     Dates: start: 201403
  3. MOMETASONE [Suspect]
     Active Substance: MOMETASONE
     Indication: DERMATITIS ATOPIC
     Dosage: UNK
     Route: 061
  4. HYDROCORTISONE (UNKNOWN) [Suspect]
     Active Substance: HYDROCORTISONE
     Indication: CUTANEOUS LUPUS ERYTHEMATOSUS
     Dosage: HYDROCORTISONE BUTYRATE 0.1% CREAM
     Route: 061
  5. HYDROCORTISONE (UNKNOWN) [Suspect]
     Active Substance: HYDROCORTISONE
     Indication: GASTROINTESTINAL INFECTION
     Dosage: 10 MG, DAILY
     Route: 065
  6. HYDROCORTISONE (UNKNOWN) [Suspect]
     Active Substance: HYDROCORTISONE
     Dosage: UNK
     Route: 042
  7. HYDROCORTISONE (UNKNOWN) [Suspect]
     Active Substance: HYDROCORTISONE
     Dosage: HYDROCORTISONE BUTYRATE 0.1% CREAM
     Route: 061
     Dates: start: 201306
  8. HYDROCORTISONE (UNKNOWN) [Suspect]
     Active Substance: HYDROCORTISONE
     Dosage: HYDROCORTISONE BUTYRATE 0.1% CREAM TWICE WEEKLY
     Route: 061
     Dates: start: 201306

REACTIONS (3)
  - Adrenal suppression [Not Recovered/Not Resolved]
  - Hypotension [Unknown]
  - Withdrawal syndrome [Unknown]
